FAERS Safety Report 24298775 (Version 3)
Quarter: 2024Q4

REPORT INFORMATION
  Report Type: Spontaneous
  Country: NO (occurrence: NO)
  Receive Date: 20240909
  Receipt Date: 20241128
  Transmission Date: 20250114
  Serious: Yes (Hospitalization)
  Sender: ABBVIE
  Company Number: None

PATIENT
  Age: 41 Year
  Sex: Female

DRUGS (5)
  1. CIPRALEX [Suspect]
     Active Substance: ESCITALOPRAM OXALATE
     Indication: Product used for unknown indication
     Dosage: 10 MG ONCE A DAY.?N06AB10 - ESCITALOPRAM
     Route: 065
  2. TICOVAC [Suspect]
     Active Substance: TICK-BORNE ENCEPHALITIS PURIFIED ANTIGEN (FORMALDEHYDE INACTIVATED)
     Indication: Immunisation
     Dosage: DOSE NO. IN SERIES: 1. TIME OF VACCINATION:12:20 VACCINATION SITE: LEFTARM?J07BA01 - ENCEPHALITIS...
     Route: 065
     Dates: start: 20240621
  3. Behepan [Concomitant]
     Indication: Product used for unknown indication
     Dosage: 1MG X 1
     Route: 065
  4. WEGOVY [Concomitant]
     Active Substance: SEMAGLUTIDE
     Indication: Product used for unknown indication
     Dosage: 2,4 MG/DOSE ONCE A WEEK
     Route: 065
  5. NARATRIPTAN HYDROCHLORIDE [Suspect]
     Active Substance: NARATRIPTAN HYDROCHLORIDE
     Indication: Migraine
     Dosage: 2,5 MG WHEN NEEDED (ABOUT TWICE WEEKLY).
     Route: 065

REACTIONS (2)
  - Subarachnoid haemorrhage [Recovering/Resolving]
  - Reversible cerebral vasoconstriction syndrome [Recovering/Resolving]

NARRATIVE: CASE EVENT DATE: 20240627
